FAERS Safety Report 6239706-0 (Version None)
Quarter: 2009Q2

REPORT INFORMATION
  Report Type: 
  Country: None (occurrence: None)
  Receive Date: 20090619
  Receipt Date: 20090602
  Transmission Date: 20091009
  Serious: Yes (Death)
  Sender: FDA-Public Use
  Company Number: 8047566

PATIENT
  Age: 81 Year
  Sex: Female

DRUGS (5)
  1. LEVETIRACETAM [Suspect]
     Indication: STATUS EPILEPTICUS
     Dosage: IV
     Route: 042
  2. DIAZEPAM [Suspect]
     Indication: STATUS EPILEPTICUS
     Dosage: 5 MG ONCE
  3. VALPROATE SODIUM [Suspect]
     Indication: STATUS EPILEPTICUS
     Dosage: 2400 MG ONCE
  4. GABAPENTIN [Suspect]
  5. CARBAMAZEPINE [Suspect]

REACTIONS (2)
  - NO THERAPEUTIC RESPONSE [None]
  - STATUS EPILEPTICUS [None]
